FAERS Safety Report 9173003 (Version 2)
Quarter: 2013Q4

REPORT INFORMATION
  Report Type: Report from Study
  Country: FR (occurrence: FR)
  Receive Date: 20130320
  Receipt Date: 20131008
  Transmission Date: 20140711
  Serious: Yes (Other)
  Sender: FDA-Public Use
  Company Number: FR-BIOGENIDEC-2013BI025057

PATIENT
  Age: 26 Year
  Sex: Female

DRUGS (12)
  1. TYSABRI [Suspect]
     Indication: MULTIPLE SCLEROSIS
     Route: 042
     Dates: start: 20071004, end: 20101124
  2. TYSABRI [Suspect]
     Indication: MULTIPLE SCLEROSIS
     Route: 042
     Dates: end: 20111216
  3. ANTIDEPRESSANTS [Concomitant]
  4. ANTI-MUSCARINIC AGENTS [Concomitant]
  5. MUSCLE RELAXANTS [Concomitant]
  6. NON STEROIDAL ANTI-INFLAMMATORY AGENTS [Concomitant]
  7. ANTI-EPILEPTICS [Concomitant]
  8. TRAMADOL [Concomitant]
     Indication: PAIN
  9. BACLOFENE [Concomitant]
     Indication: MUSCLE SPASTICITY
     Dates: start: 20080926
  10. PRIMIDONE [Concomitant]
     Indication: ATAXIA
     Dates: start: 20081224
  11. CLONAZEPAM [Concomitant]
     Indication: PAIN
     Dates: start: 2001
  12. TRIMEBUTINE [Concomitant]
     Dates: start: 201008

REACTIONS (1)
  - Gastrostomy [Recovered/Resolved]
